FAERS Safety Report 6429283-3 (Version None)
Quarter: 2009Q4

REPORT INFORMATION
  Report Type: 
  Country: None (occurrence: None)
  Receive Date: 20091105
  Receipt Date: 20091030
  Transmission Date: 20100525
  Serious: Yes (Hospitalization)
  Sender: FDA-Public Use
  Company Number: PHHY2009CA25985

PATIENT
  Sex: Male

DRUGS (1)
  1. SANDOSTATIN LAR [Suspect]
     Indication: CARCINOID SYNDROME
     Dosage: 50 MG EVERY 4 WEEKS
     Route: 030
     Dates: start: 20020103

REACTIONS (4)
  - DIZZINESS [None]
  - HEADACHE [None]
  - NAUSEA [None]
  - NEPHROLITHIASIS [None]
